FAERS Safety Report 5281909-6 (Version None)
Quarter: 2007Q1

REPORT INFORMATION
  Report Type: 
  Country: None (occurrence: None)
  Receive Date: 20070330
  Receipt Date: 20070327
  Transmission Date: 20070707
  Serious: Yes (Other)
  Sender: FDA-Public Use
  Company Number: US-ELI_LILLY_AND_COMPANY-US200703005673

PATIENT
  Age: 41 Year
  Sex: Male

DRUGS (1)
  1. ZYPREXA [Suspect]
     Dosage: 15 MG, 2/D
     Route: 048

REACTIONS (4)
  - LUNG NEOPLASM MALIGNANT [None]
  - LYMPHOMA [None]
  - NEUTROPENIA [None]
  - PRESCRIBED OVERDOSE [None]
